FAERS Safety Report 11029422 (Version 5)
Quarter: 2015Q2

REPORT INFORMATION
  Report Type: Spontaneous
  Country: IT (occurrence: IT)
  Receive Date: 20150415
  Receipt Date: 20150607
  Transmission Date: 20150821
  Serious: Yes (Hospitalization, Other)
  Sender: FDA-Public Use
  Company Number: IT-AMGEN-ITASP2015035796

PATIENT
  Age: 76 Year
  Sex: Female

DRUGS (3)
  1. PENICILINE G                       /00000903/ [Concomitant]
     Dosage: 1 DF, 4X/DAY
     Dates: start: 20150328
  2. ENBREL [Suspect]
     Active Substance: ETANERCEPT
     Indication: PSORIASIS
     Dosage: 50 MG, WEEKLY
     Route: 058
     Dates: start: 20090309, end: 20150309
  3. CLINDAMYCIN [Concomitant]
     Active Substance: CLINDAMYCIN\CLINDAMYCIN PHOSPHATE
     Dosage: UNK

REACTIONS (11)
  - Hyperpyrexia [Recovering/Resolving]
  - Deep vein thrombosis [Unknown]
  - Feeding disorder [Unknown]
  - Cardiac valve rupture [Unknown]
  - Aortic stenosis [Unknown]
  - Left ventricular hypertrophy [Unknown]
  - Aortic calcification [Unknown]
  - Haemodynamic instability [Unknown]
  - Aortic valve incompetence [Unknown]
  - Atrioventricular block [Unknown]
  - Streptococcal endocarditis [Recovering/Resolving]

NARRATIVE: CASE EVENT DATE: 20150315
